FAERS Safety Report 6098739-8 (Version None)
Quarter: 2009Q1

REPORT INFORMATION
  Report Type: 
  Country: None (occurrence: None)
  Receive Date: 20090302
  Receipt Date: 20090218
  Transmission Date: 20090719
  Serious: Yes (Death, Life-Threatening, Hospitalization)
  Sender: FDA-Public Use
  Company Number: JP-PFIZER INC-2009156327

PATIENT

DRUGS (9)
  1. ZYVOX [Suspect]
     Indication: STAPHYLOCOCCAL INFECTION
     Dosage: UNK
     Route: 042
     Dates: start: 20081223, end: 20090102
  2. PREDONINE [Concomitant]
     Dosage: UNK
     Route: 048
     Dates: start: 20081020, end: 20090111
  3. ALFAROL [Concomitant]
     Dosage: UNK
     Route: 048
     Dates: start: 20081020, end: 20090111
  4. TAKEPRON [Concomitant]
     Dosage: UNK
     Route: 048
     Dates: start: 20081020, end: 20090111
  5. AMOBAN [Concomitant]
     Dosage: UNK
     Route: 048
     Dates: start: 20081004, end: 20090111
  6. EUTENSIN [Concomitant]
     Dosage: UNK
     Route: 048
     Dates: start: 20081112, end: 20090111
  7. MEIACT [Concomitant]
     Dosage: UNK
     Route: 048
     Dates: start: 20081228, end: 20081230
  8. EPOGIN [Concomitant]
     Dosage: UNK
     Route: 058
     Dates: start: 20081009
  9. EPOGIN [Concomitant]

REACTIONS (8)
  - ANAEMIA [None]
  - DEPRESSED LEVEL OF CONSCIOUSNESS [None]
  - GENERAL PHYSICAL HEALTH DETERIORATION [None]
  - OLIGURIA [None]
  - PLATELET COUNT DECREASED [None]
  - PYREXIA [None]
  - SEPSIS [None]
  - WHITE BLOOD CELL COUNT DECREASED [None]
